FAERS Safety Report 4515226-6 (Version None)
Quarter: 2004Q4

REPORT INFORMATION
  Report Type: 
  Country: None (occurrence: None)
  Receive Date: 20041201
  Receipt Date: 20041118
  Transmission Date: 20050328
  Serious: Yes (Hospitalization)
  Sender: FDA-Public Use
  Company Number: 386323

PATIENT
  Age: 47 Year
  Sex: Female

DRUGS (10)
  1. ARTIST [Suspect]
     Dosage: 10MG PER DAY
     Route: 048
     Dates: start: 20030815, end: 20030912
  2. ACECOL [Concomitant]
     Route: 065
     Dates: start: 20020615, end: 20030912
  3. ADALAT CC [Concomitant]
     Dates: start: 20020615
  4. ITOROL [Concomitant]
     Dates: start: 20020615
  5. LASIX [Concomitant]
     Dates: start: 20020615
  6. LANSOPRAZOLE [Concomitant]
     Dates: start: 20020615
  7. LIPOVAS [Concomitant]
     Dates: start: 20020615
  8. ASPIRIN [Concomitant]
     Dates: start: 20020615
  9. PANALDINE [Concomitant]
     Dates: start: 20020615
  10. BLOPRESS [Concomitant]
     Dates: start: 20020615

REACTIONS (5)
  - BLOOD CREATININE INCREASED [None]
  - BLOOD UREA INCREASED [None]
  - DRUG HYPERSENSITIVITY [None]
  - NEPHROPATHY [None]
  - RENAL FAILURE ACUTE [None]
